FAERS Safety Report 7291097-2 (Version None)
Quarter: 2011Q1

REPORT INFORMATION
  Report Type: 
  Country: None (occurrence: None)
  Receive Date: 20110214
  Receipt Date: 20110203
  Transmission Date: 20110831
  Serious: Yes (Hospitalization)
  Sender: FDA-Public Use
  Company Number: US-JNJFOC-20110202000

PATIENT
  Sex: Female
  Weight: 83.46 kg

DRUGS (2)
  1. MESALAMINE [Concomitant]
     Indication: CROHN'S DISEASE
  2. INFLIXIMAB, RECOMBINANT [Suspect]
     Indication: CROHN'S DISEASE
     Route: 042

REACTIONS (2)
  - LARGE INTESTINE PERFORATION [None]
  - INTESTINAL STENOSIS [None]
